FAERS Safety Report 17132908 (Version 1)
Quarter: 2019Q4

REPORT INFORMATION
  Report Type: Spontaneous
  Country: IT (occurrence: IT)
  Receive Date: 20191210
  Receipt Date: 20191210
  Transmission Date: 20200122
  Serious: Yes (Other)
  Sender: FDA-Public Use
  Company Number: IT-AUROBINDO-AUR-APL-2019-064049

PATIENT
  Age: 40 Year
  Sex: Female

DRUGS (5)
  1. CARBOPLATIN CONCENTRATE FOR SOLUTION FOR INFUSION [Suspect]
     Active Substance: CARBOPLATIN
     Dosage: 235 MILLIGRAM, CYCLICAL
     Route: 042
     Dates: start: 20190911
  2. CARBOPLATIN CONCENTRATE FOR SOLUTION FOR INFUSION [Suspect]
     Active Substance: CARBOPLATIN
     Dosage: 235 MILLIGRAM, CYCLICAL
     Route: 042
     Dates: start: 20190904, end: 20191119
  3. PACLITAXEL CONCENTRATE FOR SOLUTION FOR INFUSION [Suspect]
     Active Substance: PACLITAXEL
     Dosage: 135 MILLIGRAM, CYCLICAL
     Route: 042
     Dates: start: 20190911
  4. CARBOPLATIN CONCENTRATE FOR SOLUTION FOR INFUSION [Suspect]
     Active Substance: CARBOPLATIN
     Indication: BREAST CANCER
     Dosage: 235 MILLIGRAM, CYCLICAL
     Route: 042
     Dates: start: 20190904, end: 20190911
  5. PACLITAXEL CONCENTRATE FOR SOLUTION FOR INFUSION [Suspect]
     Active Substance: PACLITAXEL
     Indication: BREAST CANCER
     Dosage: 135 MILLIGRAM, CYCLICAL
     Route: 042
     Dates: start: 20190904, end: 20190911

REACTIONS (5)
  - Anaemia [Unknown]
  - Respiratory fatigue [Unknown]
  - Leukopenia [Unknown]
  - Asthenia [Unknown]
  - Flushing [Unknown]

NARRATIVE: CASE EVENT DATE: 20190917
